FAERS Safety Report 8001157-6 (Version None)
Quarter: 2011Q4

REPORT INFORMATION
  Report Type: 
  Country: None (occurrence: None)
  Receive Date: 20111220
  Receipt Date: 20111208
  Transmission Date: 20120403
  Serious: Yes (Other)
  Sender: FDA-Public Use
  Company Number: TPA2011A06895

PATIENT
  Age: 75 Year
  Sex: Male
  Weight: 124.2856 kg

DRUGS (14)
  1. DUETACT [Concomitant]
  2. SAXAGLIPTIN [Concomitant]
  3. ACTOS [Suspect]
     Dosage: 45 MG, 45 MG, QAM, PER ORAL
     Route: 048
     Dates: start: 20050720, end: 20111019
  4. NITROGLYCERIN [Concomitant]
  5. ASPIRIN [Concomitant]
  6. METOPROLOL ER (METOPROLOL) [Concomitant]
  7. LEXAPRO [Concomitant]
  8. LIPITOR [Concomitant]
  9. ASPIRIN [Concomitant]
  10. AVODART (DUTASTERIIDE) [Concomitant]
  11. MICARDIS HCT [Concomitant]
  12. FLOMAX [Concomitant]
  13. PLAVIX [Concomitant]
  14. AMBIEN CR [Concomitant]

REACTIONS (7)
  - ABDOMINAL PAIN [None]
  - BLADDER NEOPLASM [None]
  - NEPHROLITHIASIS [None]
  - HAEMATURIA [None]
  - POLLAKIURIA [None]
  - URINARY RETENTION [None]
  - PROSTATIC OBSTRUCTION [None]
